FAERS Safety Report 8598290-7 (Version None)
Quarter: 2012Q3

REPORT INFORMATION
  Report Type: 
  Country: None (occurrence: None)
  Receive Date: 20120806
  Receipt Date: 20120806
  Transmission Date: 20120928
  Serious: Yes (Other)
  Sender: FDA-Public Use
  Company Number: None

PATIENT
  Age: 62 Year
  Sex: Female

DRUGS (1)
  1. METFORMIN HCL [Suspect]
     Indication: TYPE 2 DIABETES MELLITUS
     Dosage: 500MG BID PO
     Route: 048
     Dates: start: 20120726, end: 20120803

REACTIONS (4)
  - PRODUCT SUBSTITUTION ISSUE [None]
  - VOMITING [None]
  - MALAISE [None]
  - DIARRHOEA [None]
